FAERS Safety Report 14941287 (Version 3)
Quarter: 2020Q2

REPORT INFORMATION
  Report Type: Report from Study
  Country: DE (occurrence: DE)
  Receive Date: 20180526
  Receipt Date: 20200428
  Transmission Date: 20200713
  Serious: Yes (Hospitalization, Other)
  Sender: FDA-Public Use
  Company Number: DE-TEVA-2018-DE-895850

PATIENT
  Age: 64 Year
  Sex: Male
  Weight: 65 kg

DRUGS (11)
  1. ZOMETA [Concomitant]
     Active Substance: ZOLEDRONIC ACID
     Dosage: 4 MILLIGRAM
     Route: 042
     Dates: start: 20140522
  2. CYCLOPHOSPHAMID [Concomitant]
     Active Substance: CYCLOPHOSPHAMIDE
     Indication: PRODUCT USED FOR UNKNOWN INDICATION
     Route: 041
     Dates: start: 20190619
  3. VINCRISTIN [Concomitant]
     Active Substance: VINCRISTINE
     Indication: PRODUCT USED FOR UNKNOWN INDICATION
     Route: 041
     Dates: start: 20190619
  4. REVLIMID [Suspect]
     Active Substance: LENALIDOMIDE
     Indication: PLASMA CELL MYELOMA
     Dosage: 25 MG
     Route: 048
     Dates: start: 20180116, end: 20181117
  5. CARFILZOMIB [Suspect]
     Active Substance: CARFILZOMIB
     Dosage: 36.6 MG
     Route: 065
     Dates: start: 20180117
  6. DEXAMETHASONE. [Concomitant]
     Active Substance: DEXAMETHASONE
     Indication: PLASMA CELL MYELOMA
     Dosage: 40 MG, UNK
     Route: 065
     Dates: start: 20180116, end: 20180220
  7. ZOMETA [Concomitant]
     Active Substance: ZOLEDRONIC ACID
     Indication: PRODUCT USED FOR UNKNOWN INDICATION
     Dosage: 4 MG
     Route: 041
     Dates: start: 20140522
  8. CARFILZOMIB [Suspect]
     Active Substance: CARFILZOMIB
     Indication: PLASMA CELL MYELOMA
     Dosage: 49.4 MG
     Route: 065
     Dates: start: 20180116, end: 20181019
  9. PREDNISOLON [Concomitant]
     Active Substance: PREDNISOLONE
     Indication: PRODUCT USED FOR UNKNOWN INDICATION
     Route: 048
     Dates: start: 20190619
  10. DEXAMETHASONE. [Suspect]
     Active Substance: DEXAMETHASONE
     Indication: PLASMA CELL MYELOMA
     Dosage: 40 MILLIGRAM
     Route: 065
     Dates: start: 20180116, end: 20180220
  11. FALITHROM [Concomitant]
     Active Substance: PHENPROCOUMON
     Indication: PRODUCT USED FOR UNKNOWN INDICATION
     Route: 041
     Dates: start: 2017

REACTIONS (3)
  - Thrombocytopenia [Recovered/Resolved]
  - Syncope [Recovered/Resolved]
  - Gastrointestinal infection [Recovered/Resolved]

NARRATIVE: CASE EVENT DATE: 20180123
